FAERS Safety Report 4414176-3 (Version None)
Quarter: 2004Q3

REPORT INFORMATION
  Report Type: 
  Country: None (occurrence: None)
  Receive Date: 20040728
  Receipt Date: 20040721
  Transmission Date: 20050211
  Serious: Yes (Hospitalization, Other)
  Sender: FDA-Public Use
  Company Number: HQWYE306121JUL04

PATIENT
  Age: 54 Year
  Sex: Male

DRUGS (5)
  1. PANTOPRAZOLE SODIUM [Suspect]
     Dosage: 40 MG 2X PER 1 DAY ORAL
     Route: 048
     Dates: start: 20040521, end: 20040523
  2. FORADIL [Suspect]
     Indication: ASTHMA
     Dosage: 12 UG 3X PER 1 DAY INHALATION
     Route: 055
     Dates: start: 20040521, end: 20040523
  3. MIFLONIL (BUDESONIDE,) [Suspect]
     Indication: ASTHMA
     Dosage: 1 DOSAGE FORM THREE TIME PER DAY INHALATION
     Route: 055
     Dates: start: 20040521, end: 20040523
  4. TRENTADIL (BAMIFYLLINE HYDROCHLORIDE,) [Suspect]
     Indication: ASTHMA
     Dosage: 300 MG 2X PER 1 DAY ORAL
     Route: 048
     Dates: start: 20040521, end: 20040523
  5. AMBROXOL (AMBROXOL) [Concomitant]

REACTIONS (1)
  - ACUTE GENERALISED EXANTHEMATOUS PUSTULOSIS [None]
